FAERS Safety Report 21072121 (Version 1)
Quarter: 2022Q3

REPORT INFORMATION
  Report Type: Spontaneous
  Country: US (occurrence: US)
  Receive Date: 20220712
  Receipt Date: 20220712
  Transmission Date: 20221027
  Serious: Yes (Other)
  Sender: FDA-Public Use
  Company Number: US-PFIZER INC-PV202200019027

PATIENT
  Age: 39 Year
  Sex: Male

DRUGS (16)
  1. ZOLOFT [Suspect]
     Active Substance: SERTRALINE HYDROCHLORIDE
     Dosage: UNK
  2. GABAPENTIN [Suspect]
     Active Substance: GABAPENTIN
     Dosage: UNK
  3. XANAX [Suspect]
     Active Substance: ALPRAZOLAM
     Dosage: UNK
  4. ATIVAN [Suspect]
     Active Substance: LORAZEPAM
     Indication: Anxiety
  5. ATIVAN [Suspect]
     Active Substance: LORAZEPAM
     Indication: Borderline personality disorder
  6. ATIVAN [Suspect]
     Active Substance: LORAZEPAM
     Indication: Bipolar II disorder
  7. ATIVAN [Suspect]
     Active Substance: LORAZEPAM
     Indication: Depression
  8. WELLBUTRIN [Suspect]
     Active Substance: BUPROPION HYDROCHLORIDE
     Dosage: UNK
  9. TEGRETOL [Suspect]
     Active Substance: CARBAMAZEPINE
     Dosage: UNK
  10. BUSPAR [Suspect]
     Active Substance: BUSPIRONE HYDROCHLORIDE
     Dosage: UNK
  11. RISPERIDONE [Suspect]
     Active Substance: RISPERIDONE
     Dosage: UNK
  12. SEROQUEL [Suspect]
     Active Substance: QUETIAPINE FUMARATE
     Dosage: UNK
  13. PAXIL [Suspect]
     Active Substance: PAROXETINE HYDROCHLORIDE
     Dosage: UNK
  14. PROZAC [Suspect]
     Active Substance: FLUOXETINE HYDROCHLORIDE
     Dosage: UNK
  15. LAMICTAL [Suspect]
     Active Substance: LAMOTRIGINE
     Dosage: UNK
  16. KLONOPIN [Suspect]
     Active Substance: CLONAZEPAM
     Dosage: UNK

REACTIONS (5)
  - Suicidal ideation [Unknown]
  - Drug ineffective [Unknown]
  - Lethargy [Unknown]
  - Weight increased [Unknown]
  - Feeling abnormal [Unknown]
